FAERS Safety Report 8596818-4 (Version None)
Quarter: 2012Q3

REPORT INFORMATION
  Report Type: 
  Country: None (occurrence: None)
  Receive Date: 20120815
  Receipt Date: 20120802
  Transmission Date: 20120928
  Serious: Yes (Hospitalization)
  Sender: FDA-Public Use
  Company Number: JP-WATSON-2012-06430

PATIENT
  Sex: Male

DRUGS (7)
  1. DEPAS [Concomitant]
     Indication: INSOMNIA
     Dosage: 1.5 MG DAILY
     Route: 048
  2. SULFAMETHOXAZOLE AND TRIMETHOPRIM [Suspect]
     Indication: CYSTITIS
     Dosage: 4 DOSAGE FORMS
     Route: 048
     Dates: start: 20120229, end: 20120302
  3. AMLODIPINE BESYLATE [Concomitant]
     Indication: HYPERTENSION
     Dosage: 2.5 MG DAILY
     Route: 048
  4. LEVOFLOXACIN [Suspect]
     Indication: CYSTITIS
     Dosage: 500 MG DAILY
     Route: 048
     Dates: start: 20120219, end: 20120221
  5. RAPAFLO [Suspect]
     Indication: BENIGN PROSTATIC HYPERPLASIA
     Dosage: 4 MG BID
     Route: 048
     Dates: start: 20120220
  6. RIZE                               /00624801/ [Concomitant]
     Indication: INSOMNIA
     Dosage: 5 MG DAILY
     Route: 048
  7. ASPIRIN [Concomitant]
     Indication: CEREBRAL INFARCTION
     Dosage: 100 MG DAILY
     Route: 048

REACTIONS (1)
  - ALTERED STATE OF CONSCIOUSNESS [None]
